FAERS Safety Report 4358799-9 (Version None)
Quarter: 2004Q2

REPORT INFORMATION
  Report Type: 
  Country: None (occurrence: None)
  Receive Date: 20040514
  Receipt Date: 20040504
  Transmission Date: 20050107
  Serious: Yes (Hospitalization)
  Sender: FDA-Public Use
  Company Number: EEME00204001291

PATIENT
  Age: 56 Year
  Sex: Female

DRUGS (4)
  1. ESTRATEST [Suspect]
     Indication: MENOPAUSAL SYMPTOMS
     Dosage: UNK DAILY; PO
     Route: 048
     Dates: start: 19920101, end: 20020401
  2. ESTRATEST [Suspect]
     Indication: PROPHYLAXIS
     Dosage: UNK DAILY; PO
     Route: 048
     Dates: start: 19920101, end: 20020401
  3. PROVERA [Suspect]
     Indication: MENOPAUSAL SYMPTOMS
     Dosage: UNK DAILY; PO
     Route: 048
     Dates: start: 19920101, end: 20020401
  4. PROVERA [Suspect]
     Indication: PROPHYLAXIS
     Dosage: UNK DAILY; PO
     Route: 048
     Dates: start: 19920101, end: 20020401

REACTIONS (3)
  - ANXIETY [None]
  - BREAST CANCER [None]
  - PAIN [None]
